FAERS Safety Report 20060895 (Version 2)
Quarter: 2021Q4

REPORT INFORMATION
  Report Type: Report from Study
  Country: BE (occurrence: None)
  Receive Date: 20211112
  Receipt Date: 20211124
  Transmission Date: 20220303
  Serious: Yes (Hospitalization)
  Sender: FDA-Public Use
  Company Number: BE-ROCHE-2949566

PATIENT
  Age: 56 Year
  Sex: Female
  Weight: 49 kg

DRUGS (8)
  1. ATEZOLIZUMAB [Suspect]
     Active Substance: ATEZOLIZUMAB
     Indication: Pleural mesothelioma malignant
     Dosage: ON 19/FEB/2019, SHE RECEIVED MOST RECENT DOSE BEFORE SAE
     Route: 041
     Dates: start: 20191218, end: 20211011
  2. BEVACIZUMAB [Suspect]
     Active Substance: BEVACIZUMAB
     Indication: Pleural mesothelioma malignant
     Dosage: 400 MG/16 ML)?ON 19/FEB/2019, SHE RECEIVED MOST RECENT DOSE BEFORE SAE
     Route: 042
     Dates: start: 20191218
  3. PEMETREXED [Suspect]
     Active Substance: PEMETREXED
     Indication: Pleural mesothelioma malignant
     Dosage: ON 19/FEB/2019, SHE RECEIVED MOST RECENT DOSE BEFORE SAE
     Route: 042
     Dates: start: 20191218
  4. CARBOPLATIN [Suspect]
     Active Substance: CARBOPLATIN
     Indication: Pleural mesothelioma malignant
     Dosage: ON 19/FEB/2019, SHE RECEIVED MOST RECENT DOSE BEFORE SAE
     Route: 042
     Dates: start: 20191218
  5. LYRICA [Concomitant]
     Active Substance: PREGABALIN
     Dosage: IN ASCENDING DOSE (STARTING 25MG TO 75MG TO 150MG TO 225MG,...)
  6. SOLU-MEDROL [Concomitant]
     Active Substance: METHYLPREDNISOLONE SODIUM SUCCINATE
  7. MEDROL [Concomitant]
     Active Substance: METHYLPREDNISOLONE
     Dosage: 32MG FOR 1 MONTH, 16MG SECOND MONTH, THEREAFTER 8MG THIRD MONTH
  8. IMURAN [Concomitant]
     Active Substance: AZATHIOPRINE
     Dosage: IN ASCENDING DOSE (50MG FIRST WEEK, 100MG FROM SECOND WEEK)

REACTIONS (1)
  - Peripheral sensory neuropathy [Recovered/Resolved with Sequelae]

NARRATIVE: CASE EVENT DATE: 20211015
